FAERS Safety Report 8251688-9 (Version None)
Quarter: 2012Q2

REPORT INFORMATION
  Report Type: 
  Country: None (occurrence: None)
  Receive Date: 20120402
  Receipt Date: 20120326
  Transmission Date: 20120825
  Serious: Yes (Death, Other)
  Sender: FDA-Public Use
  Company Number: RO-ABBOTT-11P-135-0885631-00

PATIENT
  Sex: Male
  Weight: 50 kg

DRUGS (3)
  1. HUMIRA [Suspect]
     Indication: CROHN'S DISEASE
     Route: 058
     Dates: start: 20110801, end: 20111104
  2. HUMIRA [Suspect]
  3. HUMIRA [Suspect]
     Dates: end: 20111104

REACTIONS (4)
  - SURGERY [None]
  - GASTROINTESTINAL CANDIDIASIS [None]
  - PULMONARY EMBOLISM [None]
  - GASTROENTERITIS PROTEUS [None]
